FAERS Safety Report 13228985 (Version 1)
Quarter: 2017Q1

REPORT INFORMATION
  Report Type: Spontaneous
  Country: US (occurrence: US)
  Receive Date: 20170213
  Receipt Date: 20170213
  Transmission Date: 20170428
  Serious: Yes (Death, Hospitalization)
  Sender: FDA-Public Use
  Company Number: US-STRIDES ARCOLAB LIMITED-2017SP000930

PATIENT

DRUGS (1)
  1. TACROLIMUS. [Suspect]
     Active Substance: TACROLIMUS
     Indication: LIVER TRANSPLANT
     Dosage: UNK

REACTIONS (7)
  - Cat scratch disease [Unknown]
  - Jaundice [Unknown]
  - Endocarditis bacterial [Fatal]
  - Hypotension [Unknown]
  - Melaena [Unknown]
  - Abdominal pain [Unknown]
  - Cachexia [Unknown]
